FAERS Safety Report 14661824 (Version 1)
Quarter: 2018Q1

REPORT INFORMATION
  Report Type: Spontaneous
  Country: US (occurrence: US)
  Receive Date: 20180318
  Receipt Date: 20180318
  Transmission Date: 20180509
  Serious: Yes (Hospitalization, Other)
  Sender: FDA-Public Use
  Company Number: None

PATIENT
  Age: 83 Year
  Sex: Female
  Weight: 80.55 kg

DRUGS (15)
  1. COREG FERRALET 90 [Concomitant]
  2. FUROSEMIDE. [Concomitant]
     Active Substance: FUROSEMIDE
  3. ULORIC [Concomitant]
     Active Substance: FEBUXOSTAT
  4. VITAMIN D3 [Concomitant]
     Active Substance: CHOLECALCIFEROL
  5. TRESIBA [Concomitant]
     Active Substance: INSULIN DEGLUDEC
  6. ISOSORBIDE. [Concomitant]
     Active Substance: ISOSORBIDE
  7. OMEPRAZOLE. [Concomitant]
     Active Substance: OMEPRAZOLE
  8. BABY ASPIRIN [Concomitant]
     Active Substance: ASPIRIN
  9. MAG-OX [Concomitant]
     Active Substance: MAGNESIUM OXIDE
  10. SPIRONOLACTONE. [Concomitant]
     Active Substance: SPIRONOLACTONE
  11. VITAMIN B12 [Concomitant]
     Active Substance: CYANOCOBALAMIN
  12. BRILINTA [Suspect]
     Active Substance: TICAGRELOR
     Indication: CORONARY ARTERIAL STENT INSERTION
     Dosage: ?          QUANTITY:60 TABLET(S);?
     Route: 048
     Dates: start: 20180212, end: 20180312
  13. INSULIN - NOVALOG [Concomitant]
  14. BABY ASPIRIN [Concomitant]
     Active Substance: ASPIRIN
  15. CALCITRIOL. [Concomitant]
     Active Substance: CALCITRIOL

REACTIONS (9)
  - Vomiting [None]
  - Weight decreased [None]
  - Blood uric acid increased [None]
  - Renal impairment [None]
  - White blood cell count increased [None]
  - Cough [None]
  - Abdominal pain upper [None]
  - Asthenia [None]
  - Respiratory disorder [None]

NARRATIVE: CASE EVENT DATE: 20180212
